FAERS Safety Report 9964205 (Version 4)
Quarter: 2014Q2

REPORT INFORMATION
  Report Type: Spontaneous
  Country: US (occurrence: US)
  Receive Date: 20140305
  Receipt Date: 20140428
  Transmission Date: 20141212
  Serious: Yes (Disabling)
  Sender: FDA-Public Use
  Company Number: US-009507513-1104USA02988

PATIENT
  Sex: Male

DRUGS (2)
  1. PROPECIA [Suspect]
     Indication: ANDROGENETIC ALOPECIA
     Dosage: 1 MG, QD
     Route: 048
     Dates: start: 2003, end: 2009
  2. PROPECIA [Suspect]
     Indication: ALOPECIA

REACTIONS (14)
  - Male sexual dysfunction [Unknown]
  - Anxiety [Unknown]
  - Depression [Unknown]
  - Semen viscosity decreased [Unknown]
  - Suicidal ideation [Unknown]
  - Malaise [Unknown]
  - Sexual relationship change [Unknown]
  - Crying [Unknown]
  - Breast enlargement [Unknown]
  - Feeling of despair [Unknown]
  - Erectile dysfunction [Unknown]
  - Loss of libido [Unknown]
  - Testicular pain [Unknown]
  - Breast pain [Unknown]
